FAERS Safety Report 6633628-9 (Version None)
Quarter: 2010Q1

REPORT INFORMATION
  Report Type: 
  Country: None (occurrence: None)
  Receive Date: 20100312
  Receipt Date: 20100304
  Transmission Date: 20100710
  Serious: Yes (Hospitalization)
  Sender: FDA-Public Use
  Company Number: JP-MERCK-1003USA01281

PATIENT
  Age: 77 Year
  Sex: Male

DRUGS (7)
  1. JANUVIA [Suspect]
     Indication: TYPE 2 DIABETES MELLITUS
     Route: 048
     Dates: start: 20091217
  2. HARNAL [Concomitant]
     Route: 065
  3. LANDEL [Concomitant]
     Route: 065
  4. CRESTOR [Concomitant]
     Route: 065
  5. MELBIN [Concomitant]
     Route: 065
  6. EPALRESTAT [Concomitant]
     Route: 065
  7. HYDROCHLOROTHIAZIDE AND TELMISARTAN [Concomitant]
     Route: 065

REACTIONS (1)
  - HYPOTENSION [None]
